FAERS Safety Report 5334807-3 (Version None)
Quarter: 2007Q2

REPORT INFORMATION
  Report Type: 
  Country: None (occurrence: None)
  Receive Date: 20070308
  Receipt Date: 20061114
  Transmission Date: 20071010
  Serious: No
  Sender: FDA-Public Use
  Company Number: 2006-BP-11615BP

PATIENT
  Age: 82 Year
  Sex: Male
  Weight: 100.2 kg

DRUGS (11)
  1. SPIRIVA [Suspect]
     Indication: CHRONIC OBSTRUCTIVE PULMONARY DISEASE
     Dosage: 18 MCG (18 MCG, 1 IN 1 D), IH
     Route: 055
     Dates: end: 20060802
  2. ALBUTEROL [Concomitant]
  3. FLOVENT HFA (FLUTICASONE PROPIONATE) [Concomitant]
  4. ADVAIR DISCUS (SERETIDE) [Concomitant]
  5. PREDNISONE TAB [Concomitant]
  6. AUGMENTIN '125' [Concomitant]
  7. MONTELUKAST (MONTELUKAST) [Concomitant]
  8. THEOPHYLLINE [Concomitant]
  9. CLARITIN [Concomitant]
  10. COUGH COLD (ALL OTHER THERAPEUTIC PRODUCTS) [Concomitant]
  11. VITAMIN SUPPLEMENTS (RETINOL) [Concomitant]

REACTIONS (6)
  - EYE BURNS [None]
  - EYE PRURITUS [None]
  - HAEMATOSPERMIA [None]
  - OCULAR HYPERAEMIA [None]
  - RASH [None]
  - RED BLOOD CELLS SEMEN [None]
